FAERS Safety Report 12140801 (Version 1)
Quarter: 2016Q1

REPORT INFORMATION
  Report Type: Spontaneous
  Country: US (occurrence: None)
  Receive Date: 20160302
  Receipt Date: 20160302
  Transmission Date: 20160526
  Serious: No
  Sender: FDA-Public Use
  Company Number: None

PATIENT
  Age: 91 Year
  Sex: Male
  Weight: 92 kg

DRUGS (1)
  1. RUXOLITINIB 5 MG TABS [Suspect]
     Active Substance: RUXOLITINIB
     Indication: CHRONIC LEUKAEMIA
     Route: 048
     Dates: start: 20160205, end: 20160214

REACTIONS (1)
  - Upper respiratory tract infection [None]

NARRATIVE: CASE EVENT DATE: 20160214
